FAERS Safety Report 23940906 (Version 1)
Quarter: 2024Q2

REPORT INFORMATION
  Report Type: Spontaneous
  Country: TR (occurrence: TR)
  Receive Date: 20240605
  Receipt Date: 20240605
  Transmission Date: 20240716
  Serious: Yes (Other)
  Sender: FDA-Public Use
  Company Number: TR-AMGEN-TURSP2024104791

PATIENT

DRUGS (1)
  1. ADALIMUMAB [Suspect]
     Active Substance: ADALIMUMAB\ISOPROPYL ALCOHOL
     Indication: Axial spondyloarthritis
     Dosage: UNK
     Route: 065

REACTIONS (9)
  - Embolism [Unknown]
  - Neoplasm malignant [Unknown]
  - Uveitis [Unknown]
  - Lupus-like syndrome [Unknown]
  - Tuberculosis [Unknown]
  - Skin reaction [Unknown]
  - Liver disorder [Unknown]
  - Infection [Unknown]
  - Hypersensitivity [Unknown]
